FAERS Safety Report 6845055-X (Version None)
Quarter: 2010Q3

REPORT INFORMATION
  Report Type: 
  Country: None (occurrence: None)
  Receive Date: 20100715
  Receipt Date: 20070813
  Transmission Date: 20110219
  Serious: Yes (Other)
  Sender: FDA-Public Use
  Company Number: US-PFIZER INC-2007068315

PATIENT
  Sex: Female
  Weight: 71.2 kg

DRUGS (3)
  1. CHANTIX [Interacting]
     Indication: EX-TOBACCO USER
     Dates: start: 20070805, end: 20070812
  2. ALPRAZOLAM [Suspect]
     Indication: ANXIETY
  3. VICODIN [Interacting]
     Indication: BACK PAIN

REACTIONS (3)
  - BACK PAIN [None]
  - DEPRESSION [None]
  - DRUG INTERACTION [None]
